FAERS Safety Report 6589420-7 (Version None)
Quarter: 2010Q1

REPORT INFORMATION
  Report Type: 
  Country: None (occurrence: None)
  Receive Date: 20100218
  Receipt Date: 20091201
  Transmission Date: 20100710
  Serious: Yes (Death, Hospitalization)
  Sender: FDA-Public Use
  Company Number: JP-SANOFI-AVENTIS-A01200903329

PATIENT
  Age: 82 Year
  Sex: Male

DRUGS (15)
  1. SULPIRIDE [Suspect]
     Indication: DEPRESSION
     Route: 048
     Dates: start: 20081224, end: 20090310
  2. CERCINE [Suspect]
     Indication: DRUG USE FOR UNKNOWN INDICATION
     Route: 048
     Dates: start: 20081204, end: 20090310
  3. ARTIST [Suspect]
     Indication: CARDIAC FAILURE CHRONIC
     Route: 048
     Dates: start: 20081225, end: 20090310
  4. KLARICID [Suspect]
     Indication: PNEUMONIA
     Route: 048
     Dates: start: 20081127, end: 20090310
  5. DIGOXIN [Suspect]
     Indication: ATRIAL FIBRILLATION
     Route: 048
     Dates: start: 20081222, end: 20090310
  6. FUROSEMIDE [Suspect]
     Indication: CARDIAC FAILURE CONGESTIVE
     Route: 048
     Dates: end: 20090310
  7. PAXIL [Suspect]
     Route: 048
     Dates: start: 20090117, end: 20090211
  8. PAXIL [Suspect]
     Dosage: UNIT DOSE: 20 MG
     Route: 048
     Dates: start: 20090212, end: 20090218
  9. PAXIL [Suspect]
     Route: 048
     Dates: start: 20090219, end: 20090310
  10. SEREVENT [Suspect]
     Indication: EMPHYSEMA
     Route: 055
     Dates: start: 20081204, end: 20090310
  11. UNIPHYL [Suspect]
     Indication: EMPHYSEMA
     Route: 048
     Dates: end: 20090310
  12. SPIRIVA [Suspect]
     Indication: EMPHYSEMA
     Route: 055
     Dates: start: 20081204, end: 20090310
  13. VASOLAN [Suspect]
     Indication: ARRHYTHMIA
     Route: 048
     Dates: end: 20090310
  14. SOLDEM 3 [Concomitant]
     Indication: DRUG USE FOR UNKNOWN INDICATION
     Route: 065
     Dates: start: 20090118, end: 20090310
  15. WARFARIN SODIUM [Concomitant]
     Dates: start: 20081119, end: 20090310

REACTIONS (3)
  - DISSEMINATED INTRAVASCULAR COAGULATION [None]
  - MULTI-ORGAN FAILURE [None]
  - NEUROLEPTIC MALIGNANT SYNDROME [None]
